FAERS Safety Report 9507328 (Version 1)
Quarter: 2013Q3

REPORT INFORMATION
  Report Type: Spontaneous
  Country: US (occurrence: US)
  Receive Date: 20130909
  Receipt Date: 20130909
  Transmission Date: 20140515
  Serious: Yes (Hospitalization)
  Sender: FDA-Public Use
  Company Number: US-PFIZER INC-2013257602

PATIENT
  Age: 61 Year
  Sex: Male
  Weight: 81.63 kg

DRUGS (3)
  1. CHANTIX [Suspect]
     Indication: SMOKING CESSATION THERAPY
     Dosage: 0.5 MG, 1X/DAY
     Route: 048
     Dates: start: 201308, end: 201308
  2. CHANTIX [Interacting]
     Dosage: UNK
     Route: 048
     Dates: start: 201308, end: 20130821
  3. REGLAN [Interacting]
     Indication: GASTRIC DISORDER
     Dosage: 10 MG, UNK
     Dates: end: 2013

REACTIONS (5)
  - Suicidal ideation [Not Recovered/Not Resolved]
  - Feeling abnormal [Not Recovered/Not Resolved]
  - Mental disorder [Not Recovered/Not Resolved]
  - Drug interaction [Unknown]
  - Abnormal dreams [Not Recovered/Not Resolved]
